FAERS Safety Report 9020554 (Version 1)
Quarter: 2013Q1

REPORT INFORMATION
  Report Type: Spontaneous
  Country: US (occurrence: US)
  Receive Date: 20130119
  Receipt Date: 20130119
  Transmission Date: 20140127
  Serious: No
  Sender: FDA-Public Use
  Company Number: US-ALLERGAN-1207402US

PATIENT
  Age: 38 Year
  Sex: Female

DRUGS (4)
  1. BOTOX? [Suspect]
     Indication: MIGRAINE
     Dosage: 150 UNITS, SINGLE
     Route: 030
     Dates: start: 20120516, end: 20120516
  2. LYRICA [Concomitant]
     Indication: MIGRAINE
     Dosage: UNK
     Route: 048
  3. TIZANIDINE [Concomitant]
     Indication: MIGRAINE
     Dosage: UNK
     Route: 048
  4. CAMBIA [Concomitant]
     Indication: MIGRAINE
     Dosage: 150 UNK, PRN
     Route: 048

REACTIONS (2)
  - Eye swelling [Unknown]
  - Eyelid ptosis [Unknown]
